FAERS Safety Report 24256876 (Version 1)
Quarter: 2024Q3

REPORT INFORMATION
  Report Type: Spontaneous
  Country: BE (occurrence: BE)
  Receive Date: 20240828
  Receipt Date: 20240828
  Transmission Date: 20241016
  Serious: Yes (Other)
  Sender: CHEPLAPHARM
  Company Number: None

PATIENT
  Age: 45 Year
  Sex: Male

DRUGS (5)
  1. CAPECITABINE [Suspect]
     Active Substance: CAPECITABINE
  2. OZEMPIC [Suspect]
     Active Substance: SEMAGLUTIDE
  3. RYBELSUS [Suspect]
     Active Substance: SEMAGLUTIDE
  4. LYRICA [Suspect]
     Active Substance: PREGABALIN
  5. TRULICITY [Suspect]
     Active Substance: DULAGLUTIDE

REACTIONS (3)
  - Drug abuse [Unknown]
  - Intentional product misuse [Unknown]
  - Prescription form tampering [Unknown]
